FAERS Safety Report 4497699-0 (Version None)
Quarter: 2004Q4

REPORT INFORMATION
  Report Type: 
  Country: None (occurrence: None)
  Receive Date: 20041104
  Receipt Date: 20041021
  Transmission Date: 20050328
  Serious: Yes (Death)
  Sender: FDA-Public Use
  Company Number: 2004AL001073

PATIENT
  Age: 21 Year
  Sex: Male

DRUGS (1)
  1. MORPHINE SULFATE [Suspect]
     Dosage: IV
     Route: 042
     Dates: start: 20030601, end: 20030601

REACTIONS (3)
  - DRUG ABUSER [None]
  - INTENTIONAL MISUSE [None]
  - RESPIRATORY FAILURE [None]
